FAERS Safety Report 16577539 (Version 1)
Quarter: 2019Q3

REPORT INFORMATION
  Report Type: Spontaneous
  Country: US (occurrence: US)
  Receive Date: 20190715
  Receipt Date: 20190715
  Transmission Date: 20191004
  Serious: Yes (Other)
  Sender: FDA-Public Use
  Company Number: None

PATIENT
  Age: 70 Year
  Sex: Female
  Weight: 63 kg

DRUGS (3)
  1. BETA BLOCKER [Concomitant]
     Active Substance: UNSPECIFIED INGREDIENT
  2. MIXED B VITAMINS [Concomitant]
  3. CVS HEALTH FAST ACTING LUBRICANT EYE DROP, 15 ML [POLYETHYLENE GLYCOL 400\PROPYLENE GLYCOL] [Suspect]
     Active Substance: POLYETHYLENE GLYCOL 400\PROPYLENE GLYCOL
     Indication: DRY EYE
     Dosage: ?          OTHER STRENGTH:NOT KNOWN;QUANTITY:3 BOTTLE;?
     Route: 047

REACTIONS (3)
  - Recalled product administered [None]
  - Eye irritation [None]
  - Eye pruritus [None]

NARRATIVE: CASE EVENT DATE: 20190601
